FAERS Safety Report 15372657 (Version 1)
Quarter: 2018Q3

REPORT INFORMATION
  Report Type: Report from Study
  Country: US (occurrence: US)
  Receive Date: 20180912
  Receipt Date: 20180912
  Transmission Date: 20181010
  Serious: No
  Sender: FDA-Public Use
  Company Number: PHEH2018US036785

PATIENT
  Sex: Female

DRUGS (1)
  1. ENTRESTO [Suspect]
     Active Substance: SACUBITRIL\VALSARTAN
     Indication: CARDIAC DISORDER
     Dosage: (SACUBITRIL 24 MG, VALSARTAN: UNKNOWN), BID
     Route: 048

REACTIONS (2)
  - Amnesia [Unknown]
  - Product use in unapproved indication [Unknown]
